FAERS Safety Report 19473451 (Version 1)
Quarter: 2021Q2

REPORT INFORMATION
  Report Type: Spontaneous
  Country: NZ (occurrence: NZ)
  Receive Date: 20210629
  Receipt Date: 20210629
  Transmission Date: 20210717
  Serious: Yes (Hospitalization, Other)
  Sender: FDA-Public Use
  Company Number: NZ-POPULATION COUNCIL-2021TPC000151

PATIENT
  Sex: Female

DRUGS (1)
  1. JADELLE [Suspect]
     Active Substance: LEVONORGESTREL
     Indication: PRODUCT USED FOR UNKNOWN INDICATION
     Route: 059
     Dates: start: 202010

REACTIONS (4)
  - Pregnancy with implant contraceptive [Recovered/Resolved]
  - Drug ineffective [Unknown]
  - Complication of delivery [Unknown]
  - Premature delivery [Unknown]

NARRATIVE: CASE EVENT DATE: 202106
